FAERS Safety Report 15435376 (Version 1)
Quarter: 2018Q4

REPORT INFORMATION
  Report Type: Spontaneous
  Country: US (occurrence: US)
  Receive Date: 20180927
  Receipt Date: 20180927
  Transmission Date: 20190204
  Serious: No
  Sender: FDA-Public Use
  Company Number: US-INDIVIOR LIMITED-INDV-113355-2018

PATIENT
  Sex: Male

DRUGS (2)
  1. SUBLOCADE [Suspect]
     Active Substance: BUPRENORPHINE
     Indication: DRUG USE DISORDER
     Dosage: 100MG, QMO (TWO DOSES)
     Route: 058
     Dates: start: 201807
  2. SUBLOCADE [Suspect]
     Active Substance: BUPRENORPHINE
     Indication: DRUG USE DISORDER
     Dosage: 300MG, QMO (TWO DOSES)
     Route: 058
     Dates: start: 201805, end: 201806

REACTIONS (1)
  - Weight decreased [Unknown]

NARRATIVE: CASE EVENT DATE: 201805
